FAERS Safety Report 6254557-9 (Version None)
Quarter: 2009Q3

REPORT INFORMATION
  Report Type: 
  Country: None (occurrence: None)
  Receive Date: 20090702
  Receipt Date: 20090623
  Transmission Date: 20100115
  Serious: Yes (Hospitalization, Other)
  Sender: FDA-Public Use
  Company Number: A0718980A

PATIENT
  Age: 72 Year
  Sex: Female
  Weight: 79.5 kg

DRUGS (8)
  1. AVANDIA [Suspect]
     Dosage: 4MG TWICE PER DAY
     Dates: start: 19990101, end: 20060512
  2. AVANDAMET [Suspect]
     Dates: start: 19990101, end: 20060512
  3. AVANDARYL [Suspect]
     Dates: start: 19990101, end: 20060512
  4. DIABETA [Concomitant]
     Dates: start: 20021201, end: 20070201
  5. MICRONASE [Concomitant]
     Dates: start: 19940101, end: 20070201
  6. ZOCOR [Concomitant]
  7. ADVIL [Concomitant]
  8. CARDIZEM [Concomitant]

REACTIONS (4)
  - CARDIAC FAILURE CONGESTIVE [None]
  - MYOCARDIAL INFARCTION [None]
  - OPEN WOUND [None]
  - PULMONARY CONGESTION [None]
